FAERS Safety Report 24205104 (Version 6)
Quarter: 2024Q4

REPORT INFORMATION
  Report Type: Report from Study
  Country: CO (occurrence: CO)
  Receive Date: 20240813
  Receipt Date: 20241231
  Transmission Date: 20250115
  Serious: Yes (Other)
  Sender: NOVARTIS
  Company Number: CO-002147023-NVSC2024CO157463

PATIENT
  Age: 35 Year
  Sex: Male
  Weight: 86 kg

DRUGS (3)
  1. COSENTYX [Suspect]
     Active Substance: SECUKINUMAB
     Indication: Psoriatic arthropathy
     Dosage: 300 MG, QW
     Route: 058
     Dates: start: 20240621
  2. COSENTYX [Suspect]
     Active Substance: SECUKINUMAB
     Indication: Psoriasis
     Dosage: 150 MG, QW
     Route: 058
     Dates: start: 20240623, end: 20240623
  3. COSENTYX [Suspect]
     Active Substance: SECUKINUMAB
     Dosage: 150 MG, QW
     Route: 058
     Dates: start: 20240810, end: 20240810

REACTIONS (22)
  - Arthritis [Not Recovered/Not Resolved]
  - Influenza [Recovered/Resolved]
  - Malaise [Unknown]
  - Headache [Unknown]
  - Gamma-glutamyltransferase abnormal [Unknown]
  - Blood bilirubin abnormal [Unknown]
  - Vision blurred [Unknown]
  - Peripheral spondyloarthritis [Unknown]
  - Asthenia [Not Recovered/Not Resolved]
  - Dizziness [Not Recovered/Not Resolved]
  - Cough [Unknown]
  - Oropharyngeal pain [Unknown]
  - Dengue fever [Recovered/Resolved]
  - Axial spondyloarthritis [Unknown]
  - Dengue fever [Unknown]
  - Arthralgia [Not Recovered/Not Resolved]
  - Dysgeusia [Unknown]
  - Ageusia [Unknown]
  - Adverse drug reaction [Unknown]
  - Joint effusion [Unknown]
  - Temperature difference of extremities [Unknown]
  - Inappropriate schedule of product administration [Unknown]

NARRATIVE: CASE EVENT DATE: 20240601
